FAERS Safety Report 9677838 (Version 1)
Quarter: 2013Q4

REPORT INFORMATION
  Report Type: Spontaneous
  Country: CA (occurrence: CA)
  Receive Date: 20131108
  Receipt Date: 20131108
  Transmission Date: 20140711
  Serious: Yes (Hospitalization, Other)
  Sender: FDA-Public Use
  Company Number: CA-ROCHE-1295799

PATIENT
  Age: 56 Year
  Sex: Female

DRUGS (10)
  1. CLONAZEPAM [Suspect]
     Indication: PRODUCT USED FOR UNKNOWN INDICATION
     Route: 065
  2. CLONAZEPAM [Suspect]
     Route: 065
  3. DIAZEPAM [Suspect]
     Indication: PRODUCT USED FOR UNKNOWN INDICATION
     Route: 065
  4. PHENYTOIN [Suspect]
     Indication: PRODUCT USED FOR UNKNOWN INDICATION
     Route: 065
  5. QUETIAPINE [Suspect]
     Indication: PRODUCT USED FOR UNKNOWN INDICATION
     Dosage: THERAPY DURATION: 7.0 YEARS
     Route: 048
  6. QUETIAPINE [Suspect]
     Route: 048
  7. QUETIAPINE [Suspect]
     Route: 048
  8. SERTRALINE [Suspect]
     Indication: PRODUCT USED FOR UNKNOWN INDICATION
     Route: 065
  9. SERTRALINE [Suspect]
     Route: 065
  10. CLOZAPINE [Concomitant]
     Route: 065

REACTIONS (18)
  - Dysarthria [Unknown]
  - Oromandibular dystonia [Unknown]
  - Agranulocytosis [Recovered/Resolved]
  - Akathisia [Recovered/Resolved]
  - Dystonia [Recovered/Resolved]
  - Somnambulism [Recovered/Resolved]
  - Trismus [Recovered/Resolved]
  - Hallucination [Recovered/Resolved]
  - Hypotension [Recovered/Resolved]
  - Pain [Recovered/Resolved]
  - Paraesthesia [Recovered/Resolved]
  - Speech disorder [Recovered/Resolved]
  - Tardive dyskinesia [Recovered/Resolved]
  - Temporomandibular joint syndrome [Recovered/Resolved]
  - Muscle spasms [Unknown]
  - Incoherent [Unknown]
  - Pain in jaw [Unknown]
  - Arthralgia [Unknown]
